FAERS Safety Report 10035548 (Version 1)
Quarter: 2014Q1

REPORT INFORMATION
  Report Type: Spontaneous
  Country: US (occurrence: US)
  Receive Date: 20140325
  Receipt Date: 20140325
  Transmission Date: 20141002
  Serious: No
  Sender: FDA-Public Use
  Company Number: US-PFIZER INC-2014083049

PATIENT
  Age: 56 Year
  Sex: Female

DRUGS (1)
  1. PRISTIQ [Suspect]
     Indication: CRYING
     Dosage: UNK

REACTIONS (4)
  - Headache [Unknown]
  - Neck pain [Unknown]
  - Flat affect [Unknown]
  - Mood altered [Unknown]
